FAERS Safety Report 19768145 (Version 1)
Quarter: 2021Q3

REPORT INFORMATION
  Report Type: Other
  Country: KR (occurrence: KR)
  Receive Date: 20210831
  Receipt Date: 20210831
  Transmission Date: 20211014
  Serious: Yes (Other)
  Sender: FDA-Public Use
  Company Number: KR-ROCHE-2897692

PATIENT
  Age: 59 Year
  Sex: Male
  Weight: 64 kg

DRUGS (11)
  1. JANUMET [Concomitant]
     Active Substance: METFORMIN HYDROCHLORIDE\SITAGLIPTIN PHOSPHATE
  2. LEVOTUSS [Concomitant]
     Active Substance: LEVODROPROPIZINE
  3. MAGMIL [Concomitant]
     Active Substance: MAGNESIUM HYDROXIDE
  4. ATEZOLIZUMAB. [Suspect]
     Active Substance: ATEZOLIZUMAB
     Indication: NON-SMALL CELL LUNG CANCER
     Dosage: ON 14/SEP/2020 AND 05/OCT/2020, RECEIVED SUBSEQUENT DOSES OF ATEZOLIZUMAB
     Route: 041
     Dates: start: 20200824
  5. SURFOLASE [Concomitant]
  6. ROSUZET [Concomitant]
     Active Substance: EZETIMIBE\ROSUVASTATIN
  7. CODEINE [Concomitant]
     Active Substance: CODEINE
  8. LIPINON [Concomitant]
  9. NEXIUM [Concomitant]
     Active Substance: ESOMEPRAZOLE MAGNESIUM
  10. CODAEWON [Concomitant]
  11. MOTILITONE [Concomitant]
     Active Substance: HERBALS

REACTIONS (1)
  - Bipolar disorder [Recovering/Resolving]

NARRATIVE: CASE EVENT DATE: 20200915
